FAERS Safety Report 18034837 (Version 1)
Quarter: 2020Q3

REPORT INFORMATION
  Report Type: Spontaneous
  Country: FR (occurrence: FR)
  Receive Date: 20200716
  Receipt Date: 20200716
  Transmission Date: 20201103
  Serious: Yes (Life-Threatening, Hospitalization)
  Sender: FDA-Public Use
  Company Number: NVSC2020FR199264

PATIENT
  Age: 55 Year
  Sex: Male
  Weight: 90 kg

DRUGS (2)
  1. EUCREAS [Suspect]
     Active Substance: METFORMIN HYDROCHLORIDE\VILDAGLIPTIN
     Indication: TOXICITY TO VARIOUS AGENTS
     Dosage: 30 DF
     Route: 048
     Dates: start: 20200613, end: 20200613
  2. REPAGLINIDE. [Suspect]
     Active Substance: REPAGLINIDE
     Indication: PRODUCT USED FOR UNKNOWN INDICATION
     Dosage: 30 DF
     Route: 048
     Dates: start: 20200613, end: 20200613

REACTIONS (3)
  - Lactic acidosis [Recovered/Resolved]
  - Shock [Recovered/Resolved]
  - Renal failure [Not Recovered/Not Resolved]

NARRATIVE: CASE EVENT DATE: 20200613
